FAERS Safety Report 21853076 (Version 1)
Quarter: 2023Q1

REPORT INFORMATION
  Report Type: Spontaneous
  Country: US (occurrence: US)
  Receive Date: 20230112
  Receipt Date: 20230112
  Transmission Date: 20230418
  Serious: No
  Sender: FDA-Public Use
  Company Number: US-APOTEX-2022AP010463

PATIENT
  Age: 32 Year
  Sex: Male

DRUGS (1)
  1. LITHIUM [Suspect]
     Active Substance: LITHIUM
     Indication: Bipolar disorder
     Dosage: UNK
     Route: 065

REACTIONS (4)
  - Sedation [Recovered/Resolved]
  - Cognitive disorder [Unknown]
  - Drug intolerance [Unknown]
  - Antipsychotic drug level below therapeutic [Unknown]
